FAERS Safety Report 4287486-0 (Version None)
Quarter: 2004Q1

REPORT INFORMATION
  Report Type: 
  Country: None (occurrence: None)
  Receive Date: 20040205
  Receipt Date: 20040130
  Transmission Date: 20041129
  Serious: Yes (Death)
  Sender: FDA-Public Use
  Company Number: US-JNJFOC-20040200189

PATIENT
  Age: 83 Year
  Sex: Male

DRUGS (1)
  1. NIZORAL [Suspect]
     Indication: PROSTATE CANCER

REACTIONS (1)
  - COLON CANCER [None]
